FAERS Safety Report 23096996 (Version 1)
Quarter: 2023Q4

REPORT INFORMATION
  Report Type: Spontaneous
  Country: GB (occurrence: GB)
  Receive Date: 20231023
  Receipt Date: 20231023
  Transmission Date: 20240109
  Serious: Yes (Other)
  Sender: FDA-Public Use
  Company Number: GB-002147023-NVSC2023GB212186

PATIENT
  Sex: Female

DRUGS (3)
  1. LETROZOLE [Suspect]
     Active Substance: LETROZOLE
     Indication: Breast cancer
     Dosage: UNK
     Route: 065
  2. FEMARA [Suspect]
     Active Substance: LETROZOLE
     Indication: Breast cancer
     Dosage: 2.5 MILLIGRAM
     Route: 065
  3. FEMARA [Suspect]
     Active Substance: LETROZOLE
     Dosage: 2.5 MILLIGRAM
     Route: 065

REACTIONS (7)
  - Atrial fibrillation [Unknown]
  - Rheumatoid arthritis [Unknown]
  - Oral disorder [Unknown]
  - Dyspepsia [Unknown]
  - Intercepted product dispensing error [Unknown]
  - Product availability issue [Unknown]
  - Product use issue [Unknown]
